FAERS Safety Report 22939998 (Version 4)
Quarter: 2024Q3

REPORT INFORMATION
  Report Type: Report from Study
  Country: FR (occurrence: FR)
  Receive Date: 20230913
  Receipt Date: 20240821
  Transmission Date: 20241017
  Serious: Yes (Other)
  Sender: TAKEDA
  Company Number: FR-TAKEDA-2022TUS069212

PATIENT
  Age: 8 Year
  Sex: Female
  Weight: 14 kg

DRUGS (18)
  1. TEDUGLUTIDE [Suspect]
     Active Substance: TEDUGLUTIDE
     Indication: Short-bowel syndrome
     Dosage: 1 MILLIGRAM, 5/WEEK
     Route: 042
     Dates: start: 20210607, end: 20220610
  2. TEDUGLUTIDE [Suspect]
     Active Substance: TEDUGLUTIDE
     Indication: Short-bowel syndrome
     Dosage: 1 MILLIGRAM, 5/WEEK
     Route: 042
     Dates: start: 20210607, end: 20220610
  3. TEDUGLUTIDE [Suspect]
     Active Substance: TEDUGLUTIDE
     Indication: Short-bowel syndrome
     Dosage: 1 MILLIGRAM, 5/WEEK
     Route: 042
     Dates: start: 20210607, end: 20220610
  4. TEDUGLUTIDE [Suspect]
     Active Substance: TEDUGLUTIDE
     Indication: Short-bowel syndrome
     Dosage: 1 MILLIGRAM, 5/WEEK
     Route: 042
     Dates: start: 20210607, end: 20220610
  5. TEDUGLUTIDE [Suspect]
     Active Substance: TEDUGLUTIDE
     Dosage: 1 MILLIGRAM, QD
     Route: 042
     Dates: start: 20230909, end: 20240226
  6. TEDUGLUTIDE [Suspect]
     Active Substance: TEDUGLUTIDE
     Dosage: 1 MILLIGRAM, QD
     Route: 042
     Dates: start: 20230909, end: 20240226
  7. TEDUGLUTIDE [Suspect]
     Active Substance: TEDUGLUTIDE
     Dosage: 1 MILLIGRAM, QD
     Route: 042
     Dates: start: 20230909, end: 20240226
  8. TEDUGLUTIDE [Suspect]
     Active Substance: TEDUGLUTIDE
     Dosage: 1 MILLIGRAM, QD
     Route: 042
     Dates: start: 20230909, end: 20240226
  9. URSODIOL [Concomitant]
     Active Substance: URSODIOL
     Indication: Cholestasis
     Dosage: 4.5 MILLIGRAM, BID
     Route: 048
     Dates: start: 20220516, end: 20220922
  10. URSODIOL [Concomitant]
     Active Substance: URSODIOL
     Dosage: 5.5 MILLILITER, BID
     Route: 048
     Dates: start: 20220923
  11. RISPERIDONE [Concomitant]
     Active Substance: RISPERIDONE
     Indication: Behaviour disorder
     Dosage: 0.25 MILLIGRAM, BID
     Route: 048
     Dates: start: 20220610
  12. Dexeryl [Concomitant]
     Indication: Dry skin
     Dosage: UNK
     Route: 061
     Dates: start: 20220516
  13. AMIKACIN SULFATE [Concomitant]
     Active Substance: AMIKACIN SULFATE
     Indication: Pyrexia
     Dosage: UNK UNK, QD
     Route: 042
     Dates: start: 20221108, end: 20221110
  14. PHLOROGLUCINOL [Concomitant]
     Active Substance: PHLOROGLUCINOL
     Indication: Abdominal pain
     Dosage: 80 MILLIGRAM
     Route: 048
     Dates: start: 20230223, end: 20230223
  15. ACETAMINOPHEN [Concomitant]
     Active Substance: ACETAMINOPHEN
     Indication: Abdominal pain
     Dosage: 1 MILLIGRAM/KILOGRAM
     Route: 048
     Dates: start: 20230223, end: 20230223
  16. VITAMINS [Concomitant]
     Active Substance: VITAMINS
     Indication: Vitamin supplementation
     Dosage: 10 MILLILITER, QD
     Route: 048
     Dates: start: 202402
  17. FLUOXETINE [Concomitant]
     Active Substance: FLUOXETINE HYDROCHLORIDE
     Indication: Depression
     Dosage: 20 MILLIGRAM, QD
     Route: 048
     Dates: start: 202405
  18. ECONAZOLE [Concomitant]
     Active Substance: ECONAZOLE
     Indication: Pruritus
     Dosage: 3 DOSAGE FORM, QD
     Route: 061
     Dates: start: 20240503, end: 20240512

REACTIONS (4)
  - Vancomycin infusion reaction [Recovered/Resolved]
  - Epistaxis [Recovered/Resolved]
  - Diarrhoea [Recovered/Resolved]
  - Rhinitis [Recovered/Resolved]

NARRATIVE: CASE EVENT DATE: 20220901
